FAERS Safety Report 17489598 (Version 1)
Quarter: 2020Q1

REPORT INFORMATION
  Report Type: Spontaneous
  Country: SE (occurrence: SE)
  Receive Date: 20200303
  Receipt Date: 20200303
  Transmission Date: 20200409
  Serious: Yes (Hospitalization)
  Sender: FDA-Public Use
  Company Number: NVSC2020SE057212

PATIENT
  Age: 56 Year
  Sex: Female

DRUGS (2)
  1. PROPAVAN [Suspect]
     Active Substance: PROPIOMAZINE
     Indication: PRODUCT USED FOR UNKNOWN INDICATION
     Dosage: UNK, (OKLAR M?NGD)
     Route: 048
     Dates: start: 201907, end: 201907
  2. ENALAPRIL [Suspect]
     Active Substance: ENALAPRIL
     Indication: PRODUCT USED FOR UNKNOWN INDICATION
     Dosage: UNK, (10 MG, 30 TAL)
     Route: 048
     Dates: start: 201907, end: 201907

REACTIONS (3)
  - Intentional self-injury [Unknown]
  - Hallucination [Unknown]
  - Intentional overdose [Unknown]

NARRATIVE: CASE EVENT DATE: 201907
